FAERS Safety Report 8520872-9 (Version None)
Quarter: 2012Q3

REPORT INFORMATION
  Report Type: 
  Country: None (occurrence: None)
  Receive Date: 20120719
  Receipt Date: 20120409
  Transmission Date: 20120928
  Serious: No
  Sender: FDA-Public Use
  Company Number: US-TEVA-332573USA

PATIENT
  Sex: Female

DRUGS (7)
  1. ASCORBIC ACID [Concomitant]
  2. COLECALCIFEROL [Concomitant]
  3. DOXORUBICIN HCL [Concomitant]
  4. DOCUSATE SODIUM [Concomitant]
  5. DACARBAZINE [Concomitant]
  6. BLEOMYCIN SULFATE [Suspect]
     Indication: HODGKIN'S DISEASE
     Dates: start: 20120405
  7. VINBLASTINE SULFATE [Concomitant]

REACTIONS (6)
  - SKIN REACTION [None]
  - URTICARIA [None]
  - SKIN DISCOLOURATION [None]
  - DRUG HYPERSENSITIVITY [None]
  - PRURITUS [None]
  - RASH [None]
